FAERS Safety Report 25570185 (Version 1)
Quarter: 2025Q3

REPORT INFORMATION
  Report Type: Spontaneous
  Country: US (occurrence: US)
  Receive Date: 20250717
  Receipt Date: 20250717
  Transmission Date: 20251021
  Serious: No
  Sender: EMCURE PHARMACEUTICALS LTD
  Company Number: US-AVET LIFESCIENCES LTD-2025-AVET-000225

PATIENT

DRUGS (1)
  1. SERTRALINE HYDROCHLORIDE [Suspect]
     Active Substance: SERTRALINE HYDROCHLORIDE
     Indication: Depression
     Route: 065

REACTIONS (2)
  - Drug ineffective [Unknown]
  - Product substitution issue [Unknown]
